FAERS Safety Report 4892188-3 (Version None)
Quarter: 2006Q1

REPORT INFORMATION
  Report Type: 
  Country: None (occurrence: None)
  Receive Date: 20060124
  Receipt Date: 20051122
  Transmission Date: 20060701
  Serious: Yes (Death)
  Sender: FDA-Public Use
  Company Number: 1713747 / 2005 / 000025

PATIENT
  Age: 67 Year
  Sex: Male

DRUGS (1)
  1. DELFLEX W/ DEXTROSE 1.5% [Suspect]
     Indication: RENAL FAILURE
     Dosage: INTRAPERITONEALLY
     Route: 033
     Dates: start: 20051114

REACTIONS (4)
  - BRADYCARDIA [None]
  - CARDIO-RESPIRATORY ARREST [None]
  - POOR QUALITY DRUG ADMINISTERED [None]
  - PROCEDURAL COMPLICATION [None]
